FAERS Safety Report 4813513-5 (Version None)
Quarter: 2005Q4

REPORT INFORMATION
  Report Type: 
  Country: None (occurrence: None)
  Receive Date: 20051028
  Receipt Date: 20050218
  Transmission Date: 20060501
  Serious: No
  Sender: FDA-Public Use
  Company Number: US-GLAXOSMITHKLINE-A0546314A

PATIENT
  Age: 52 Year
  Sex: Male

DRUGS (2)
  1. ADVAIR DISKUS 100/50 [Suspect]
     Indication: RESPIRATORY TRACT CONGESTION
     Dosage: 1PUFF TWICE PER DAY
     Route: 055
     Dates: start: 20050218
  2. AZITHROMYCIN [Concomitant]

REACTIONS (2)
  - DRUG INEFFECTIVE [None]
  - OVERDOSE [None]
